FAERS Safety Report 23633523 (Version 1)
Quarter: 2024Q1

REPORT INFORMATION
  Report Type: Report from Study
  Country: BR (occurrence: BR)
  Receive Date: 20240314
  Receipt Date: 20240314
  Transmission Date: 20240410
  Serious: Yes (Other)
  Sender: FDA-Public Use
  Company Number: BR-JNJFOC-20240320668

PATIENT
  Age: 28 Year
  Sex: Female
  Weight: 43 kg

DRUGS (1)
  1. INFLIXIMAB [Suspect]
     Active Substance: INFLIXIMAB
     Indication: Rheumatoid arthritis
     Route: 041
     Dates: start: 20221206, end: 202401

REACTIONS (2)
  - Crohn^s disease [Unknown]
  - Paradoxical psoriasis [Unknown]

NARRATIVE: CASE EVENT DATE: 20230101
